FAERS Safety Report 4403150-9 (Version None)
Quarter: 2004Q3

REPORT INFORMATION
  Report Type: 
  Country: None (occurrence: None)
  Receive Date: 20040721
  Receipt Date: 20040519
  Transmission Date: 20050211
  Serious: No
  Sender: FDA-Public Use
  Company Number: US-GLAXOSMITHKLINE-A0511476A

PATIENT
  Age: 52 Year
  Sex: Female

DRUGS (11)
  1. IMITREX [Suspect]
     Indication: MIGRAINE
     Dosage: 100MG AS REQUIRED
     Route: 048
  2. IMITREX [Suspect]
     Route: 045
  3. IMITREX [Suspect]
     Route: 058
     Dates: end: 20031201
  4. SYNTHROID [Concomitant]
  5. ESTRADIOL [Concomitant]
  6. NEURONTIN [Concomitant]
  7. FOSAMAX [Concomitant]
  8. KLONOPIN [Concomitant]
  9. BUPROPION HCL [Concomitant]
  10. BENADRYL [Concomitant]
  11. TYLENOL [Concomitant]

REACTIONS (3)
  - DRUG INEFFECTIVE [None]
  - EPISTAXIS [None]
  - VOMITING [None]
